FAERS Safety Report 5822555-2 (Version None)
Quarter: 2008Q3

REPORT INFORMATION
  Report Type: 
  Country: None (occurrence: None)
  Receive Date: 20080725
  Receipt Date: 20080110
  Transmission Date: 20090109
  Serious: No
  Sender: FDA-Public Use
  Company Number: US-AMGEN-KDL261423

PATIENT
  Sex: Female
  Weight: 72.2 kg

DRUGS (7)
  1. PROCRIT [Suspect]
     Indication: RENAL FAILURE CHRONIC
     Dates: start: 20051001
  2. TRIAMTEREN [Concomitant]
  3. GLYBURIDE [Concomitant]
  4. PREDNISONE TAB [Concomitant]
     Dates: start: 20060101
  5. NEXIUM [Concomitant]
     Route: 048
  6. CRESTOR [Concomitant]
  7. LISINOPRIL [Concomitant]

REACTIONS (3)
  - DECREASED ACTIVITY [None]
  - FEELING ABNORMAL [None]
  - HAEMOGLOBIN DECREASED [None]
